FAERS Safety Report 7536127-5 (Version None)
Quarter: 2011Q2

REPORT INFORMATION
  Report Type: 
  Country: None (occurrence: None)
  Receive Date: 20110609
  Receipt Date: 20110531
  Transmission Date: 20111010
  Serious: Yes (Hospitalization)
  Sender: FDA-Public Use
  Company Number: US-NOVOPROD-329211

PATIENT
  Sex: Female
  Weight: 102.4 kg

DRUGS (8)
  1. XANAX [Concomitant]
     Dosage: UNK
     Dates: start: 19910101
  2. BENICAR [Concomitant]
     Indication: BLOOD PRESSURE INCREASED
  3. CRESTOR [Concomitant]
     Indication: BLOOD CHOLESTEROL INCREASED
  4. VICTOZA [Suspect]
     Indication: TYPE 2 DIABETES MELLITUS
     Dosage: UNK
     Route: 058
     Dates: start: 20100901, end: 20101101
  5. ZETIA [Concomitant]
     Indication: BLOOD CHOLESTEROL INCREASED
  6. ZEGERID                            /00661201/ [Concomitant]
     Indication: GASTROOESOPHAGEAL REFLUX DISEASE
  7. XANAX [Concomitant]
     Indication: INSOMNIA
     Dosage: UNK
     Dates: start: 20100901, end: 20101101
  8. VICTOZA [Suspect]
     Dosage: UNK
     Route: 058
     Dates: start: 20101129

REACTIONS (5)
  - ABDOMINAL PAIN [None]
  - NAUSEA [None]
  - PANCREATITIS [None]
  - GALLBLADDER DISORDER [None]
  - DIARRHOEA [None]
